FAERS Safety Report 9074527 (Version 1)
Quarter: 2013Q1

REPORT INFORMATION
  Report Type: Report from Study
  Country: US (occurrence: US)
  Receive Date: 20130129
  Receipt Date: 20130129
  Transmission Date: 20140127
  Serious: No
  Sender: FDA-Public Use
  Company Number: US-ABBOTT-12P-163-0929038-00

PATIENT
  Age: 74 Year
  Sex: Female

DRUGS (4)
  1. HUMIRA 40 MG/0.8 ML PEN [Suspect]
     Indication: PSORIASIS
     Dates: start: 20120411
  2. VERAPAMIL [Concomitant]
     Indication: CARDIOVASCULAR EVENT PROPHYLAXIS
  3. VERAPAMIL [Concomitant]
     Indication: CARDIOVASCULAR EVENT PROPHYLAXIS
  4. PAIN PILL [Concomitant]
     Indication: PAIN PROPHYLAXIS
     Dates: start: 20120220

REACTIONS (5)
  - Nephrolithiasis [Not Recovered/Not Resolved]
  - Urinary tract infection [Not Recovered/Not Resolved]
  - Renal stone removal [Not Recovered/Not Resolved]
  - Wrong technique in drug usage process [Unknown]
  - Incorrect dose administered [Unknown]
